FAERS Safety Report 15833097 (Version 4)
Quarter: 2019Q1

REPORT INFORMATION
  Report Type: Spontaneous
  Country: US (occurrence: US)
  Receive Date: 20190116
  Receipt Date: 20190312
  Transmission Date: 20190417
  Serious: Yes (Hospitalization)
  Sender: FDA-Public Use
  Company Number: US-CELGENEUS-USA-20190102931

PATIENT
  Age: 65 Year
  Sex: Female
  Weight: 62.2 kg

DRUGS (3)
  1. POMALYST [Suspect]
     Active Substance: POMALIDOMIDE
     Indication: PLASMA CELL MYELOMA
     Dosage: 2 MILLIGRAM
     Route: 048
     Dates: start: 20170407
  2. POMALYST [Suspect]
     Active Substance: POMALIDOMIDE
     Dosage: 2 MILLIGRAM
     Route: 048
     Dates: start: 201903
  3. POMALYST [Suspect]
     Active Substance: POMALIDOMIDE
     Dosage: 1MG-4MG
     Route: 048
     Dates: start: 201811

REACTIONS (4)
  - Malaise [Recovered/Resolved]
  - Infection [Recovered/Resolved]
  - Heart rate decreased [Recovered/Resolved]
  - White blood cell count decreased [Recovered/Resolved]

NARRATIVE: CASE EVENT DATE: 20181218
